APPROVED DRUG PRODUCT: AZULFIDINE
Active Ingredient: SULFASALAZINE
Strength: 500MG
Dosage Form/Route: TABLET;ORAL
Application: N007073 | Product #001 | TE Code: AB
Applicant: PFIZER INC
Approved: Approved Prior to Jan 1, 1982 | RLD: Yes | RS: Yes | Type: RX